FAERS Safety Report 10090485 (Version 1)
Quarter: 2014Q2

REPORT INFORMATION
  Report Type: Spontaneous
  Country: US (occurrence: None)
  Receive Date: 20140417
  Receipt Date: 20140417
  Transmission Date: 20141212
  Serious: Yes (Hospitalization)
  Sender: FDA-Public Use
  Company Number: UTC-046718

PATIENT
  Age: 38 Year
  Sex: Female
  Weight: 73.04 kg

DRUGS (4)
  1. REMODULIN [Suspect]
     Indication: COR PULMONALE CHRONIC
     Dosage: (0.057 UG/KG, 1 IN 1 MIN)?
     Route: 058
     Dates: start: 20140225
  2. REVATIO (SILDENAFIL CITRATE) [Concomitant]
  3. WARFARIN (WARFARIN) [Concomitant]
  4. LETAIRIS (AMBRISENTAN) [Concomitant]

REACTIONS (4)
  - Infusion site discolouration [None]
  - Diarrhoea [None]
  - Headache [None]
  - Nausea [None]
